FAERS Safety Report 4543100-8 (Version None)
Quarter: 2004Q4

REPORT INFORMATION
  Report Type: 
  Country: None (occurrence: None)
  Receive Date: 20041229
  Receipt Date: 20041216
  Transmission Date: 20050328
  Serious: Yes (Death, Hospitalization)
  Sender: FDA-Public Use
  Company Number: F01200402869

PATIENT
  Age: 76 Year
  Sex: Female

DRUGS (3)
  1. OXALIPLATIN - SOLUTION - 50 MG/M2 [Suspect]
     Indication: NUCLEAR MAGNETIC RESONANCE IMAGING ABNORMAL
     Dosage: 50 MG/M2 1/WEEK, INTRAVENOUS NOS
     Route: 042
     Dates: start: 20040920, end: 20040920
  2. OXALIPLATIN - SOLUTION - 50 MG/M2 [Suspect]
     Indication: RECTAL CANCER
     Dosage: 50 MG/M2 1/WEEK, INTRAVENOUS NOS
     Route: 042
     Dates: start: 20040920, end: 20040920
  3. CAPECTIABINE - TABLET - 1500 MG/M2 [Suspect]
     Dosage: 1500 MG/M2 TWICE DAILY FOR 5 DAYS OF WEEKS 1 TO 5 ORAL
     Route: 048
     Dates: start: 20040920, end: 20040924

REACTIONS (2)
  - DIARRHOEA [None]
  - PNEUMONIA [None]
